FAERS Safety Report 9443822 (Version 1)
Quarter: 2013Q3

REPORT INFORMATION
  Report Type: Spontaneous
  Country: US (occurrence: US)
  Receive Date: 20130806
  Receipt Date: 20130806
  Transmission Date: 20140515
  Serious: Yes (Other)
  Sender: FDA-Public Use
  Company Number: US-RB-056862-13

PATIENT
  Age: 57 Year
  Sex: Male

DRUGS (13)
  1. SUBOXONE TABLET [Suspect]
     Indication: DRUG DEPENDENCE
     Dosage: CUT THE TABLET AND TAKING ONE THIRD THREE TIMES DAILY
     Route: 060
  2. SUBOXONE FILM [Suspect]
     Indication: DRUG DEPENDENCE
     Dosage: SUBOXONE FILM; CUT THE FILM AND WAS TAKING ONE THIRD THREE TIME DAILY
     Route: 060
     Dates: end: 201301
  3. SUBOXONE FILM [Suspect]
     Dosage: SUBOXONE FILM. DOSING DETAILS UNKNOWN
     Route: 065
  4. LYRICA [Concomitant]
     Indication: PAIN
     Dosage: DOSING DETAILS UNKNOWN; TREATMENT WAS INTERRUPTED FOR 6 WEEKS IN JAN-2013
     Route: 048
  5. LYRICA [Concomitant]
     Indication: FIBROMYALGIA
     Dosage: DOSING DETAILS UNKNOWN; TREATMENT WAS INTERRUPTED FOR 6 WEEKS IN JAN-2013
     Route: 048
  6. GABAPENTIN [Concomitant]
     Indication: FIBROMYALGIA
     Dosage: DOSING DETAILS UNKNOWN; TREATMENT WAS INTERRUPTED FOR 6 WEEKS IN JAN- 2013
     Route: 048
  7. GABAPENTIN [Concomitant]
     Indication: FIBROMYALGIA
     Dosage: DOSING DETAILS UNKNOWN; TREATMENT WAS INTERRUPTED FOR 6 WEEKS IN JAN- 2013
     Route: 048
  8. CELEBREX [Concomitant]
     Indication: FIBROMYALGIA
     Dosage: DOSING DETAILS UNKNOWN; TREATMENT WAS INTERRUPTED FOR 6 WEEKS IN JAN-2013
     Route: 048
  9. CELEBREX [Concomitant]
     Indication: FIBROMYALGIA
     Dosage: DOSING DETAILS UNKNOWN; TREATMENT WAS INTERRUPTED FOR 6 WEEKS IN JAN-2013
     Route: 048
  10. PROVIGIL [Concomitant]
     Indication: FATIGUE
     Dosage: DOSING DETAILS UNKNOWN; TREATMENT WAS INTERRUPTED FOR 6 WEEKS IN JAN- 2013
     Route: 048
  11. AMBIEN [Concomitant]
     Indication: INSOMNIA
     Dosage: DOSING: VARIOUS DOSES; TREAMTENT WAS INTERRUPTED FOR 6 WEEKS IN JAN-2013
     Route: 048
  12. TRAZADONE [Concomitant]
     Indication: INSOMNIA
     Dosage: DOSING DETAILS UNKNOWN; TREATMENT INTERRUPTED FOR 6 WEEKS IN JAN-2013
     Route: 048
  13. SKELAXIN [Concomitant]
     Indication: MYALGIA
     Dosage: TREATMENT WAS INTERRUPTED FOR 6 WEEKS IN JAN-2013
     Route: 048

REACTIONS (9)
  - Wrong technique in drug usage process [Recovered/Resolved]
  - Pain [Not Recovered/Not Resolved]
  - Delirium [Recovered/Resolved]
  - Loss of consciousness [Recovered/Resolved]
  - Diarrhoea [Not Recovered/Not Resolved]
  - Feeling hot [Not Recovered/Not Resolved]
  - Drug withdrawal syndrome [Recovering/Resolving]
  - Chest pain [Not Recovered/Not Resolved]
  - Burning sensation [Not Recovered/Not Resolved]
